FAERS Safety Report 23269076 (Version 1)
Quarter: 2023Q4

REPORT INFORMATION
  Report Type: Report from Study
  Country: US (occurrence: US)
  Receive Date: 20231206
  Receipt Date: 20231206
  Transmission Date: 20240109
  Serious: Yes (Hospitalization, Other)
  Sender: FDA-Public Use
  Company Number: US-ABBVIE-5521992

PATIENT
  Sex: Female

DRUGS (1)
  1. SKYRIZI [Suspect]
     Active Substance: RISANKIZUMAB-RZAA
     Indication: Crohn^s disease
     Route: 058
     Dates: start: 20230707

REACTIONS (5)
  - Shoulder operation [Recovering/Resolving]
  - Bladder disorder [Recovering/Resolving]
  - Loss of consciousness [Recovering/Resolving]
  - Fatigue [Not Recovered/Not Resolved]
  - Post procedural complication [Recovering/Resolving]

NARRATIVE: CASE EVENT DATE: 20230101
